FAERS Safety Report 24287916 (Version 1)
Quarter: 2024Q3

REPORT INFORMATION
  Report Type: Spontaneous
  Country: US (occurrence: None)
  Receive Date: 20240905
  Receipt Date: 20240905
  Transmission Date: 20241016
  Serious: No
  Sender: Public
  Company Number: None

PATIENT
  Age: 44 Year
  Sex: Female
  Weight: 123.75 kg

DRUGS (1)
  1. ZEPBOUND [Suspect]
     Active Substance: TIRZEPATIDE
     Indication: Weight decreased
     Dosage: OTHER QUANTITY : .5 ML?OTHER FREQUENCY : Q 7 DAYS?
     Route: 058
     Dates: start: 20240801

REACTIONS (3)
  - Injection site erythema [None]
  - Skin lesion [None]
  - Injection site pruritus [None]

NARRATIVE: CASE EVENT DATE: 20240905
